FAERS Safety Report 17804543 (Version 1)
Quarter: 2020Q2

REPORT INFORMATION
  Report Type: Report from Study
  Country: US (occurrence: US)
  Receive Date: 20200519
  Receipt Date: 20200519
  Transmission Date: 20200714
  Serious: Yes (Hospitalization, Other)
  Sender: FDA-Public Use
  Company Number: US-BAUSCH-BL-2020-014461

PATIENT
  Age: 73 Year
  Sex: Female

DRUGS (21)
  1. XIFAXAN [Suspect]
     Active Substance: RIFAXIMIN
     Indication: HEPATIC ENCEPHALOPATHY
     Route: 048
  2. LIDOCAINE. [Concomitant]
     Active Substance: LIDOCAINE
     Indication: PRODUCT USED FOR UNKNOWN INDICATION
     Dosage: PATCHES
  3. NEURONTIN [Concomitant]
     Active Substance: GABAPENTIN
     Indication: PRODUCT USED FOR UNKNOWN INDICATION
     Dosage: 1 CAPSULE AT NIGHT FOR ONE WEEK AND THEN 2 CAPSULE
     Route: 048
  4. LEVOTHYROXINE. [Concomitant]
     Active Substance: LEVOTHYROXINE
     Indication: PRODUCT USED FOR UNKNOWN INDICATION
  5. ELIQUIS [Concomitant]
     Active Substance: APIXABAN
     Indication: PRODUCT USED FOR UNKNOWN INDICATION
     Route: 048
  6. FERROUS SULFATE. [Concomitant]
     Active Substance: FERROUS SULFATE
     Indication: PRODUCT USED FOR UNKNOWN INDICATION
     Dosage: WITH BREAKFAST
     Route: 048
  7. ZOFRAN [Concomitant]
     Active Substance: ONDANSETRON HYDROCHLORIDE
     Indication: PRODUCT USED FOR UNKNOWN INDICATION
     Dosage: DISINTEGRATED TABLET
     Route: 048
  8. DITROPAN [Concomitant]
     Active Substance: OXYBUTYNIN CHLORIDE
     Indication: PRODUCT USED FOR UNKNOWN INDICATION
     Route: 048
  9. LACTULOSE. [Suspect]
     Active Substance: LACTULOSE
     Indication: INFREQUENT BOWEL MOVEMENTS
     Route: 065
  10. PANTOPRAZOLE [Concomitant]
     Active Substance: PANTOPRAZOLE
     Indication: PRODUCT USED FOR UNKNOWN INDICATION
  11. TYLENOL [Concomitant]
     Active Substance: ACETAMINOPHEN
     Indication: PAIN
     Dosage: TWO TABLETS ONE IN 6 HOURS AS NEEDED
     Route: 048
  12. AMOXIL [Concomitant]
     Active Substance: AMOXICILLIN
     Indication: PRODUCT USED FOR UNKNOWN INDICATION
     Route: 048
  13. SENNA [Concomitant]
     Active Substance: SENNA LEAF\SENNOSIDES\SENNOSIDES A AND B
     Indication: PRODUCT USED FOR UNKNOWN INDICATION
     Dosage: 1 TAB BY MOUTH DAILY AT BEDTIME
     Route: 048
  14. COLACE [Concomitant]
     Active Substance: DOCUSATE SODIUM
     Indication: PRODUCT USED FOR UNKNOWN INDICATION
  15. MAGNESIUM L-THREONATE [Concomitant]
     Indication: PRODUCT USED FOR UNKNOWN INDICATION
  16. SYNTHROID [Concomitant]
     Active Substance: LEVOTHYROXINE SODIUM
     Indication: PRODUCT USED FOR UNKNOWN INDICATION
     Route: 048
  17. MAGNESIUM OXIDE. [Concomitant]
     Active Substance: MAGNESIUM OXIDE
     Indication: PRODUCT USED FOR UNKNOWN INDICATION
     Dosage: 2 TABS EVERY AFTERNOON AND ONE TAB AT NIGHT
     Route: 065
  18. PROTONIX [Concomitant]
     Active Substance: PANTOPRAZOLE SODIUM
     Indication: PRODUCT USED FOR UNKNOWN INDICATION
     Route: 048
  19. MIRALAX [Concomitant]
     Active Substance: POLYETHYLENE GLYCOL 3350
     Indication: PRODUCT USED FOR UNKNOWN INDICATION
     Dosage: 1 PACKET BY MOUTH DAILY
     Route: 048
  20. ULTRAM [Concomitant]
     Active Substance: TRAMADOL HYDROCHLORIDE
     Indication: PAIN
     Dosage: AS NEEDED
     Route: 048
  21. MYCOLOG [Concomitant]
     Active Substance: GRAMICIDIN\NEOMYCIN SULFATE\NYSTATIN\TRIAMCINOLONE ACETONIDE
     Indication: PRODUCT USED FOR UNKNOWN INDICATION
     Route: 061

REACTIONS (16)
  - Ischaemic stroke [Unknown]
  - Condition aggravated [Unknown]
  - Back pain [Unknown]
  - Inability to afford medication [Unknown]
  - Hiatus hernia [Unknown]
  - Atrial fibrillation [Unknown]
  - Aphasia [Not Recovered/Not Resolved]
  - Cerebrovascular accident [Unknown]
  - Hepatic encephalopathy [Unknown]
  - Iron deficiency anaemia [Recovering/Resolving]
  - Vomiting [Unknown]
  - Drug ineffective [Unknown]
  - Constipation [Not Recovered/Not Resolved]
  - Insurance issue [Unknown]
  - Nausea [Unknown]
  - Mental status changes [Recovering/Resolving]

NARRATIVE: CASE EVENT DATE: 2020
